FAERS Safety Report 6095946-5 (Version None)
Quarter: 2009Q1

REPORT INFORMATION
  Report Type: 
  Country: None (occurrence: None)
  Receive Date: 20090227
  Receipt Date: 20080722
  Transmission Date: 20090719
  Serious: No
  Sender: FDA-Public Use
  Company Number: A0738884A

PATIENT
  Age: 31 Year
  Sex: Female

DRUGS (2)
  1. LAMICTAL [Suspect]
     Indication: BIPOLAR DISORDER
     Route: 048
     Dates: start: 20061201, end: 20080301
  2. WELLBUTRIN SR [Concomitant]

REACTIONS (8)
  - BLISTER [None]
  - BURNING SENSATION [None]
  - CHAPPED LIPS [None]
  - CHEILITIS [None]
  - DRUG EXPOSURE DURING PREGNANCY [None]
  - LIP BLISTER [None]
  - LIP DRY [None]
  - LIP HAEMORRHAGE [None]
